FAERS Safety Report 4627775-0 (Version None)
Quarter: 2005Q2

REPORT INFORMATION
  Report Type: 
  Country: None (occurrence: None)
  Receive Date: 20050401
  Receipt Date: 20050401
  Transmission Date: 20051028
  Serious: Yes (Hospitalization)
  Sender: FDA-Public Use
  Company Number: None

PATIENT
  Age: 56 Year
  Sex: Male

DRUGS (1)
  1. ABACAVIR 300 [Suspect]
     Indication: HIV INFECTION
     Dosage: 300 BID ORAL
     Route: 048
     Dates: start: 20050103, end: 20050112

REACTIONS (2)
  - FEELING JITTERY [None]
  - HEART RATE INCREASED [None]
